FAERS Safety Report 5789215-8 (Version None)
Quarter: 2008Q2

REPORT INFORMATION
  Report Type: 
  Country: None (occurrence: None)
  Receive Date: 20080625
  Receipt Date: 20080625
  Transmission Date: 20081010
  Serious: No
  Sender: FDA-Public Use
  Company Number: None

PATIENT
  Sex: Female
  Weight: 86.18 kg

DRUGS (12)
  1. CYCLOPHOSPHAMIDE [Suspect]
     Dosage: 1568 MG
  2. DOXIL [Suspect]
     Dosage: 84 MG
  3. PREDNISONE TAB [Suspect]
     Dosage: 500 MG
  4. RITUXIMAB (MOAB C2B8 ANTI CD20, CHIMERIC) [Suspect]
     Dosage: 784 MG
  5. VINCRISTINE SULFATE [Suspect]
     Dosage: 2 MG
  6. ACYCLOVIR SODIUM [Concomitant]
  7. ATAZANAVIR [Concomitant]
  8. EMTRICITABINE [Concomitant]
  9. FLUCONAZOLE [Concomitant]
  10. RITONAVIR [Concomitant]
  11. SULFAMETHOXAZOLE AND TRIMETHOPRIM [Concomitant]
  12. TENOFOVIR [Concomitant]

REACTIONS (1)
  - NEUTROPENIA [None]
